FAERS Safety Report 5405033-4 (Version None)
Quarter: 2007Q3

REPORT INFORMATION
  Report Type: 
  Country: None (occurrence: None)
  Receive Date: 20070803
  Receipt Date: 20070730
  Transmission Date: 20080115
  Serious: Yes (Hospitalization)
  Sender: FDA-Public Use
  Company Number: AU-AVENTIS-200717011GDDC

PATIENT
  Age: 69 Year
  Sex: Female

DRUGS (5)
  1. ARAVA [Suspect]
     Indication: RHEUMATOID ARTHRITIS
     Route: 048
     Dates: start: 20021023
  2. PREDNISOLONE TAB [Concomitant]
     Dosage: DOSE: UNK
  3. NAPROXEN [Concomitant]
     Dosage: DOSE: UNK
  4. THYROXIN [Concomitant]
     Dosage: DOSE: UNK
  5. MULTIVITE                          /00067501/ [Concomitant]
     Dosage: DOSE: UNK

REACTIONS (2)
  - INFLUENZA [None]
  - JOINT ARTHROPLASTY [None]
